FAERS Safety Report 9239268 (Version 2)
Quarter: 2013Q2

REPORT INFORMATION
  Report Type: Report from Study
  Country: CH (occurrence: CH)
  Receive Date: 20130418
  Receipt Date: 20130604
  Transmission Date: 20140414
  Serious: Yes (Hospitalization)
  Sender: FDA-Public Use
  Company Number: CH-UCBSA-082487

PATIENT
  Age: 73 Year
  Sex: Male
  Weight: 80 kg

DRUGS (1)
  1. LACOSAMIDE [Suspect]
     Indication: EPILEPSY

REACTIONS (1)
  - Skin injury [Recovering/Resolving]
